FAERS Safety Report 7746944-4 (Version None)
Quarter: 2011Q3

REPORT INFORMATION
  Report Type: 
  Country: None (occurrence: None)
  Receive Date: 20110913
  Receipt Date: 20110901
  Transmission Date: 20111222
  Serious: Yes (Death, Other)
  Sender: FDA-Public Use
  Company Number: PHHO2011AU14474

PATIENT
  Sex: Female

DRUGS (1)
  1. AFINITOR [Suspect]
     Indication: RECTAL CANCER
     Dosage: 5 MG, UNK

REACTIONS (2)
  - DEATH [None]
  - THROMBOCYTOPENIA [None]
